FAERS Safety Report 23742495 (Version 2)
Quarter: 2024Q2

REPORT INFORMATION
  Report Type: Report from Study
  Country: US (occurrence: US)
  Receive Date: 20240415
  Receipt Date: 20240501
  Transmission Date: 20240716
  Serious: Yes (Other)
  Sender: FDA-Public Use
  Company Number: US-HORIZON THERAPEUTICS-HZN-2021-005671

PATIENT

DRUGS (7)
  1. TEPEZZA [Suspect]
     Active Substance: TEPROTUMUMAB-TRBW
     Indication: Endocrine ophthalmopathy
     Dosage: UNK,1ST INFUSION
     Route: 042
     Dates: start: 20210807
  2. TEPEZZA [Suspect]
     Active Substance: TEPROTUMUMAB-TRBW
     Dosage: UNK,SECOND INFUSION
     Route: 042
  3. TEPEZZA [Suspect]
     Active Substance: TEPROTUMUMAB-TRBW
     Dosage: UNK,4TH INFUSION
     Route: 042
     Dates: start: 20211009
  4. TEPEZZA [Suspect]
     Active Substance: TEPROTUMUMAB-TRBW
     Dosage: UNK,5TH INFUSION
     Route: 042
     Dates: start: 20211101
  5. TEPEZZA [Suspect]
     Active Substance: TEPROTUMUMAB-TRBW
     Dosage: UNK,8TH INFUSION
     Route: 042
     Dates: start: 202201
  6. TEPEZZA [Suspect]
     Active Substance: TEPROTUMUMAB-TRBW
     Dosage: UNK, FIRST INFUSION, SECOND COURSE
     Route: 042
     Dates: start: 20231228
  7. TEPEZZA [Suspect]
     Active Substance: TEPROTUMUMAB-TRBW
     Dosage: UNK, FIFTH INFUSION, SECOND COURSE
     Route: 042
     Dates: start: 202404

REACTIONS (27)
  - Exophthalmos [Recovering/Resolving]
  - Blindness [Recovering/Resolving]
  - Decreased appetite [Recovered/Resolved]
  - Skin exfoliation [Recovered/Resolved]
  - Diplopia [Not Recovered/Not Resolved]
  - Gait disturbance [Unknown]
  - Respiratory rate increased [Unknown]
  - Eye irritation [Not Recovered/Not Resolved]
  - Fall [Unknown]
  - Alopecia [Unknown]
  - Muscle spasms [Unknown]
  - Fatigue [Unknown]
  - Onychoclasis [Unknown]
  - Alopecia [Recovered/Resolved]
  - Blood glucose increased [Recovered/Resolved]
  - Ocular hyperaemia [Unknown]
  - Blood thyroid stimulating hormone abnormal [Unknown]
  - Visual impairment [Recovered/Resolved]
  - Ear discomfort [Not Recovered/Not Resolved]
  - Paraesthesia [Unknown]
  - Rash pruritic [Recovered/Resolved]
  - Drug ineffective [Not Recovered/Not Resolved]
  - Nausea [Unknown]
  - Dizziness [Not Recovered/Not Resolved]
  - Eye pain [Unknown]
  - Ocular discomfort [Unknown]
  - Off label use [Unknown]

NARRATIVE: CASE EVENT DATE: 20210101
